FAERS Safety Report 9374215 (Version 1)
Quarter: 2013Q2

REPORT INFORMATION
  Report Type: Spontaneous
  Country: US (occurrence: US)
  Receive Date: 20130628
  Receipt Date: 20130628
  Transmission Date: 20140414
  Serious: No
  Sender: FDA-Public Use
  Company Number: US-PFIZER INC-2013192108

PATIENT
  Age: 84 Year
  Sex: Female
  Weight: 42 kg

DRUGS (1)
  1. EFFEXOR XR [Suspect]
     Indication: DEPRESSION
     Dosage: 225 MG (3 CAPSULES OF 75MG), 1X/DAY
     Route: 048
     Dates: start: 2013

REACTIONS (2)
  - Blood cholesterol increased [Not Recovered/Not Resolved]
  - Dysphagia [Not Recovered/Not Resolved]
